FAERS Safety Report 19584638 (Version 2)
Quarter: 2021Q3

REPORT INFORMATION
  Report Type: Spontaneous
  Country: US (occurrence: US)
  Receive Date: 20210720
  Receipt Date: 20210726
  Transmission Date: 20211014
  Serious: Yes (Death, Other)
  Sender: FDA-Public Use
  Company Number: US-ASTRAZENECA-2021A630507

PATIENT
  Weight: 100 kg

DRUGS (12)
  1. OMEPRAZOLE. [Suspect]
     Active Substance: OMEPRAZOLE
     Indication: GASTROOESOPHAGEAL REFLUX DISEASE
     Dosage: GENERIC
     Route: 048
     Dates: start: 20081119, end: 20110818
  2. PREVACID 24 HR [Suspect]
     Active Substance: LANSOPRAZOLE
     Indication: PRODUCT USED FOR UNKNOWN INDICATION
     Dosage: UNK
     Route: 065
  3. NEXIUM [Suspect]
     Active Substance: ESOMEPRAZOLE MAGNESIUM
     Indication: GASTROOESOPHAGEAL REFLUX DISEASE
     Route: 048
     Dates: start: 20081119, end: 20081130
  4. OMEPRAZOLE. [Suspect]
     Active Substance: OMEPRAZOLE
     Indication: GASTROOESOPHAGEAL REFLUX DISEASE
     Dosage: GENERIC
     Route: 048
     Dates: start: 20081119, end: 20110818
  5. OMEPRAZOLE. [Suspect]
     Active Substance: OMEPRAZOLE
     Indication: PEPTIC ULCER
     Dosage: GENERIC
     Route: 048
     Dates: start: 20081119, end: 20110818
  6. ACIPHEX [Suspect]
     Active Substance: RABEPRAZOLE SODIUM
     Indication: GASTROOESOPHAGEAL REFLUX DISEASE
     Route: 065
     Dates: start: 20080126, end: 20081114
  7. PROTONIX [Suspect]
     Active Substance: PANTOPRAZOLE SODIUM
     Indication: GASTROOESOPHAGEAL REFLUX DISEASE
     Dosage: GENERIC
     Route: 065
     Dates: start: 20080121, end: 20110603
  8. OMEPRAZOLE. [Suspect]
     Active Substance: OMEPRAZOLE
     Indication: PEPTIC ULCER
     Dosage: GENERIC
     Route: 048
  9. PREVACID [Suspect]
     Active Substance: LANSOPRAZOLE
     Indication: PRODUCT USED FOR UNKNOWN INDICATION
     Dosage: UNK
     Route: 065
  10. PROTONIX [Suspect]
     Active Substance: PANTOPRAZOLE SODIUM
     Indication: GASTROOESOPHAGEAL REFLUX DISEASE
     Route: 065
     Dates: start: 20100615, end: 20110826
  11. OMEPRAZOLE. [Suspect]
     Active Substance: OMEPRAZOLE
     Indication: PEPTIC ULCER
     Dosage: GENERIC
     Route: 048
     Dates: start: 20081119, end: 20110818
  12. OMEPRAZOLE. [Suspect]
     Active Substance: OMEPRAZOLE
     Indication: GASTROOESOPHAGEAL REFLUX DISEASE
     Dosage: GENERIC
     Route: 048

REACTIONS (23)
  - Acute kidney injury [Unknown]
  - Azotaemia [Unknown]
  - Renal artery stenosis [Unknown]
  - Renal tubular acidosis [Unknown]
  - Kidney small [Unknown]
  - Haemodialysis [Unknown]
  - Renal failure [Unknown]
  - Nephrolithiasis [Unknown]
  - End stage renal disease [Unknown]
  - Ureteric cancer [Unknown]
  - Haematuria [Unknown]
  - Nephropathy [Unknown]
  - Device dependence [Unknown]
  - Hydronephrosis [Unknown]
  - Renal impairment [Unknown]
  - Renal atrophy [Unknown]
  - Dialysis [Unknown]
  - Nephrosclerosis [Unknown]
  - Chronic kidney disease [Fatal]
  - Nephrogenic anaemia [Unknown]
  - Renal injury [Unknown]
  - Renal disorder [Unknown]
  - Ureterectomy [Unknown]
